FAERS Safety Report 6276168-1 (Version None)
Quarter: 2009Q3

REPORT INFORMATION
  Report Type: 
  Country: None (occurrence: None)
  Receive Date: 20090722
  Receipt Date: 20090713
  Transmission Date: 20100115
  Serious: Yes (Life-Threatening, Hospitalization)
  Sender: FDA-Public Use
  Company Number: JP-BRISTOL-MYERS SQUIBB COMPANY-14661284

PATIENT
  Age: 19 Year
  Sex: Male

DRUGS (4)
  1. EFAVIRENZ [Suspect]
     Indication: HIV INFECTION
     Dosage: DURATION:46 (UNK)
     Route: 048
     Dates: start: 20090220, end: 20090408
  2. TRUVADA [Suspect]
     Dosage: INTERRUPTED ON 06-APR-2009 RESUMED ON 22APR09
     Dates: start: 20090220
  3. ZITHROMAX [Suspect]
     Indication: OPPORTUNISTIC INFECTION PROPHYLAXIS
     Dosage: 2 DF=2 TABS FORMULATION: TABS
     Route: 048
     Dates: start: 20090114, end: 20090408
  4. BENAMBAX [Suspect]
     Indication: INFECTION PROPHYLAXIS
     Dosage: INJ
     Dates: start: 20090101, end: 20090408

REACTIONS (1)
  - AGRANULOCYTOSIS [None]
